FAERS Safety Report 17054825 (Version 1)
Quarter: 2019Q4

REPORT INFORMATION
  Report Type: Spontaneous
  Country: BE (occurrence: BE)
  Receive Date: 20191120
  Receipt Date: 20191120
  Transmission Date: 20200122
  Serious: Yes (Other)
  Sender: FDA-Public Use
  Company Number: BE-MYLANLABS-2019M1107055

PATIENT
  Age: 52 Year
  Sex: Female

DRUGS (12)
  1. PROPANOLOL                         /00030001/ [Suspect]
     Active Substance: PROPRANOLOL HYDROCHLORIDE
     Indication: PALPITATIONS
     Dosage: UNK (PROPRANOL EG)
     Route: 065
  2. SULPIRIDE [Suspect]
     Active Substance: SULPIRIDE
     Indication: DISCOMFORT
     Dosage: 2 DOSAGE FORM, QD
     Route: 065
  3. NIQUITIN [Suspect]
     Active Substance: NICOTINE
     Indication: SMOKING CESSATION THERAPY
     Dosage: UNK
     Route: 065
     Dates: start: 20180908, end: 201902
  4. SPASMOMEN [Suspect]
     Active Substance: OTILONIUM BROMIDE
     Indication: DISCOMFORT
     Dosage: 1MORNING, 1 AT NOON, 1 EVENING
     Route: 065
  5. VENLAFAXINE [Suspect]
     Active Substance: VENLAFAXINE HYDROCHLORIDE
     Indication: PRODUCT USED FOR UNKNOWN INDICATION
     Dosage: UNK
  6. DAFALGAN [Concomitant]
     Active Substance: ACETAMINOPHEN
     Indication: HEADACHE
     Dosage: UNK
     Route: 065
  7. NIQUITIN [Suspect]
     Active Substance: NICOTINE
     Indication: SMOKING CESSATION THERAPY
     Dosage: UNK
     Route: 065
     Dates: start: 201902, end: 20190429
  8. SERETIDE [Suspect]
     Active Substance: FLUTICASONE PROPIONATE\SALMETEROL XINAFOATE
     Indication: DYSPNOEA
     Dosage: 2,QD (MORNING + EVENING)
     Route: 065
  9. SULPIRIDE [Suspect]
     Active Substance: SULPIRIDE
     Dosage: 1 DOSAGE FORM, TOTAL
     Route: 048
  10. BETASERC [Suspect]
     Active Substance: BETAHISTINE
     Indication: VERTIGO
     Dosage: UNK
     Route: 065
  11. PANTOMED                           /00178901/ [Suspect]
     Active Substance: DEXPANTHENOL
     Indication: DISCOMFORT
     Dosage: 2 DOSAGE FORM, QD
  12. PANTOMED                           /00178901/ [Suspect]
     Active Substance: DEXPANTHENOL
     Dosage: 1 IN THE MORNING
     Route: 065

REACTIONS (26)
  - Eye pain [Recovering/Resolving]
  - Ear pain [Recovering/Resolving]
  - Arthralgia [Recovering/Resolving]
  - Pharyngeal swelling [Recovering/Resolving]
  - Pain [Recovering/Resolving]
  - Hypertension [Recovering/Resolving]
  - Abdominal distension [Recovering/Resolving]
  - Headache [Recovering/Resolving]
  - Anxiety [Recovering/Resolving]
  - Insomnia [Recovering/Resolving]
  - Vertigo [Recovering/Resolving]
  - Incorrect product administration duration [Unknown]
  - Tremor [Recovering/Resolving]
  - Blood pressure abnormal [Recovering/Resolving]
  - Muscular weakness [Recovering/Resolving]
  - Palpitations [Unknown]
  - Stress [Recovering/Resolving]
  - Flatulence [Recovering/Resolving]
  - Diarrhoea [Recovering/Resolving]
  - Dyspnoea [Recovering/Resolving]
  - Abdominal pain upper [Recovering/Resolving]
  - Hyperhidrosis [Unknown]
  - Aphonia [Recovering/Resolving]
  - Hot flush [Recovering/Resolving]
  - Vomiting [Unknown]
  - Nausea [Recovering/Resolving]

NARRATIVE: CASE EVENT DATE: 2018
